FAERS Safety Report 5491872-0 (Version None)
Quarter: 2007Q4

REPORT INFORMATION
  Report Type: 
  Country: None (occurrence: None)
  Receive Date: 20071018
  Receipt Date: 20071005
  Transmission Date: 20080405
  Serious: Yes (Life-Threatening)
  Sender: FDA-Public Use
  Company Number: 2007100025

PATIENT

DRUGS (2)
  1. SOMA [Suspect]
     Indication: ILL-DEFINED DISORDER
  2. VICODIN [Suspect]
     Indication: ILL-DEFINED DISORDER

REACTIONS (1)
  - ACUTE HEPATIC FAILURE [None]
